FAERS Safety Report 15894177 (Version 1)
Quarter: 2019Q1

REPORT INFORMATION
  Report Type: Spontaneous
  Country: US (occurrence: US)
  Receive Date: 20190131
  Receipt Date: 20190131
  Transmission Date: 20190417
  Serious: No
  Sender: FDA-Public Use
  Company Number: US-009507513-1901USA009611

PATIENT
  Sex: Female
  Weight: 113 kg

DRUGS (1)
  1. REMERON [Suspect]
     Active Substance: MIRTAZAPINE

REACTIONS (1)
  - Alopecia [Unknown]
